FAERS Safety Report 5484333-6 (Version None)
Quarter: 2007Q4

REPORT INFORMATION
  Report Type: 
  Country: None (occurrence: None)
  Receive Date: 20071010
  Receipt Date: 20070926
  Transmission Date: 20080405
  Serious: Yes (Other)
  Sender: FDA-Public Use
  Company Number: 2007US002281

PATIENT
  Age: 54 Year
  Sex: Male

DRUGS (3)
  1. PROGRAF(TACROLIMUS) FORMULATION UNKNOWN, 1MG [Suspect]
     Indication: LIVER TRANSPLANT
     Dosage: 2 MG, BID, ORAL; 4 MG, BID, ORAL
     Route: 048
     Dates: start: 20040101, end: 20070201
  2. PROGRAF(TACROLIMUS) FORMULATION UNKNOWN, 1MG [Suspect]
     Indication: LIVER TRANSPLANT
     Dosage: 2 MG, BID, ORAL; 4 MG, BID, ORAL
     Route: 048
     Dates: start: 20070601
  3. CELLCEPT [Concomitant]

REACTIONS (4)
  - DRUG DOSE OMISSION [None]
  - DRUG LEVEL DECREASED [None]
  - MALAISE [None]
  - TREATMENT NONCOMPLIANCE [None]
